FAERS Safety Report 8129626-9 (Version None)
Quarter: 2012Q1

REPORT INFORMATION
  Report Type: 
  Country: None (occurrence: None)
  Receive Date: 20120210
  Receipt Date: 20120207
  Transmission Date: 20120608
  Serious: Yes (Hospitalization)
  Sender: FDA-Public Use
  Company Number: IT-GLAXOSMITHKLINE-B0780537A

PATIENT
  Sex: Male

DRUGS (4)
  1. LASIX [Concomitant]
  2. LUVION [Concomitant]
  3. ARIXTRA [Suspect]
     Indication: VENOUS THROMBOSIS
     Route: 058
     Dates: start: 20111112, end: 20111117
  4. LANSOPRAZOLE [Concomitant]

REACTIONS (1)
  - HAEMATOMA [None]
